FAERS Safety Report 17503083 (Version 1)
Quarter: 2020Q1

REPORT INFORMATION
  Report Type: Spontaneous
  Country: US (occurrence: US)
  Receive Date: 20200305
  Receipt Date: 20200305
  Transmission Date: 20200409
  Serious: No
  Sender: FDA-Public Use
  Company Number: US-ROCHE-2275274

PATIENT
  Age: 75 Year
  Sex: Female
  Weight: 79.45 kg

DRUGS (4)
  1. GABAPENTIN. [Suspect]
     Active Substance: GABAPENTIN
     Indication: PAIN
     Dosage: TWICE A DAY ;ONGOING: UNKNOWN
     Route: 065
     Dates: start: 20190209
  2. XOLAIR [Suspect]
     Active Substance: OMALIZUMAB
     Dosage: LAST INFUSION
     Route: 065
     Dates: start: 20190123
  3. XOLAIR [Suspect]
     Active Substance: OMALIZUMAB
     Indication: URTICARIA
     Dosage: 150MG IN EACH ARM, EVERY 4 WEEKS ;ONGOING: YES
     Route: 065
     Dates: start: 20181126
  4. IBUPROFEN. [Suspect]
     Active Substance: IBUPROFEN
     Indication: PAIN
     Dosage: 4 TABLETS ONCE IN THE MORNING + ONCE IN AFTERNOON ;ONGOING: UNKNOWN
     Route: 065

REACTIONS (5)
  - Herpes zoster [Unknown]
  - Dizziness [Recovered/Resolved]
  - Chest pain [Not Recovered/Not Resolved]
  - Back pain [Not Recovered/Not Resolved]
  - Drug ineffective [Unknown]

NARRATIVE: CASE EVENT DATE: 20190123
